FAERS Safety Report 9314530 (Version 2)
Quarter: 2013Q2

REPORT INFORMATION
  Report Type: Spontaneous
  Country: CN (occurrence: CN)
  Receive Date: 20130529
  Receipt Date: 20130605
  Transmission Date: 20140414
  Serious: Yes (Hospitalization)
  Sender: FDA-Public Use
  Company Number: CN-PFIZER INC-2013161364

PATIENT
  Age: 83 Year
  Sex: Male

DRUGS (1)
  1. CORDARONE [Suspect]
     Indication: VENTRICULAR TACHYCARDIA
     Dosage: 0.2 G, DAILY
     Route: 048
     Dates: start: 20091020, end: 20121128

REACTIONS (4)
  - Diarrhoea [Unknown]
  - Lung disorder [Unknown]
  - Interstitial lung disease [Unknown]
  - Chest discomfort [Unknown]
